FAERS Safety Report 7472240-9 (Version None)
Quarter: 2011Q2

REPORT INFORMATION
  Report Type: 
  Country: None (occurrence: None)
  Receive Date: 20110502
  Receipt Date: 20110418
  Transmission Date: 20111010
  Serious: Yes (Disabling)
  Sender: FDA-Public Use
  Company Number: 2010MA003300

PATIENT
  Sex: Female

DRUGS (24)
  1. ZOLOFT [Concomitant]
  2. LOPRESSOR [Concomitant]
  3. PRINIVIL [Concomitant]
  4. DOXAZOSIN MESYLATE [Concomitant]
  5. CALCIUM CARBONATE [Concomitant]
  6. FUROSEMIDE [Concomitant]
  7. CIPRO [Concomitant]
  8. PREDNISONE [Concomitant]
  9. LEUCOVORIN CALCIUM [Concomitant]
  10. AMANTADINE HCL [Concomitant]
  11. PRILOSEC [Concomitant]
  12. METOCLOPRAMIDE [Suspect]
     Indication: PRODUCT USED FOR UNKNOWN INDICATION
     Dosage: ,PO
     Route: 048
     Dates: start: 20010801, end: 20080201
  13. BENTYL [Concomitant]
  14. METHOTREXATE [Concomitant]
  15. DARVOCET [Concomitant]
  16. LIERAX [Concomitant]
  17. PRIMIDONE [Concomitant]
  18. TOPROL-XL [Concomitant]
  19. ESTRADERM [Concomitant]
  20. E-MYCIN [Concomitant]
  21. XANAX [Concomitant]
  22. ALPRAZOLAM [Concomitant]
  23. MEVACOR [Concomitant]
  24. ELAVIL [Concomitant]

REACTIONS (7)
  - PARKINSONISM [None]
  - INJURY [None]
  - EMOTIONAL DISORDER [None]
  - ACTIVITIES OF DAILY LIVING IMPAIRED [None]
  - ANXIETY [None]
  - ECONOMIC PROBLEM [None]
  - ASTHENIA [None]
